FAERS Safety Report 6083888-0 (Version None)
Quarter: 2009Q1

REPORT INFORMATION
  Report Type: 
  Country: None (occurrence: None)
  Receive Date: 20090217
  Receipt Date: 20090217
  Transmission Date: 20090719
  Serious: Yes (Other)
  Sender: FDA-Public Use
  Company Number: None

PATIENT
  Sex: Female
  Weight: 77.5651 kg

DRUGS (2)
  1. NORVASC [Suspect]
     Indication: CORONARY ARTERY DISEASE
     Dosage: 5MG QD PO FALL 2008
     Route: 048
     Dates: start: 20080101
  2. NORVASC [Suspect]
     Indication: HYPERTENSION
     Dosage: 5MG QD PO FALL 2008
     Route: 048
     Dates: start: 20080101

REACTIONS (3)
  - FATIGUE [None]
  - PRODUCT QUALITY ISSUE [None]
  - RASH [None]
